FAERS Safety Report 17865472 (Version 2)
Quarter: 2020Q2

REPORT INFORMATION
  Report Type: Spontaneous
  Country: ES (occurrence: ES)
  Receive Date: 20200605
  Receipt Date: 20200612
  Transmission Date: 20200714
  Serious: Yes (Other)
  Sender: FDA-Public Use
  Company Number: ES-STRIDES ARCOLAB LIMITED-2020SP006708

PATIENT
  Age: 36 Year
  Sex: Female

DRUGS (4)
  1. TOPIRAMATE. [Suspect]
     Active Substance: TOPIRAMATE
     Indication: IDIOPATHIC INTRACRANIAL HYPERTENSION
     Dosage: 12.5 MILLIGRAM PER DAY (INITIAL DOSE)
     Route: 065
  2. ACETAZOLAMIDE. [Suspect]
     Active Substance: ACETAZOLAMIDE
     Indication: IDIOPATHIC INTRACRANIAL HYPERTENSION
     Dosage: 250 MILLIGRAM, TID
     Route: 065
  3. TOPIRAMATE. [Suspect]
     Active Substance: TOPIRAMATE
     Dosage: PROGRESSIVE INCREASE TO 50 MILLIGRAM, EVERY 12 HRS
     Route: 065
  4. TOPIRAMATE. [Suspect]
     Active Substance: TOPIRAMATE
     Dosage: 50 MILLIGRAM, EVERY 12 HRS
     Route: 065

REACTIONS (2)
  - Serous retinal detachment [Recovered/Resolved]
  - Off label use [Unknown]
